FAERS Safety Report 15119323 (Version 3)
Quarter: 2018Q3

REPORT INFORMATION
  Report Type: Spontaneous
  Country: US (occurrence: US)
  Receive Date: 20180709
  Receipt Date: 20180803
  Transmission Date: 20181010
  Serious: Yes (Other)
  Sender: FDA-Public Use
  Company Number: US-TEVA-2018-US-922158

PATIENT
  Sex: Female

DRUGS (1)
  1. LORAZEPAM TEVA [Suspect]
     Active Substance: LORAZEPAM
     Indication: MASTOCYTOSIS
     Route: 065
     Dates: start: 201801

REACTIONS (9)
  - Anaphylactic reaction [Unknown]
  - Rash [Unknown]
  - Drug prescribing error [Unknown]
  - Pruritus [Unknown]
  - Influenza [Unknown]
  - Myoclonus [Unknown]
  - Seizure [Unknown]
  - Malaise [Unknown]
  - Urticaria [Unknown]

NARRATIVE: CASE EVENT DATE: 201801
